FAERS Safety Report 6982741-5 (Version None)
Quarter: 2010Q3

REPORT INFORMATION
  Report Type: 
  Country: None (occurrence: None)
  Receive Date: 20100914
  Receipt Date: 20100405
  Transmission Date: 20110219
  Serious: Yes (Other)
  Sender: FDA-Public Use
  Company Number: US-PFIZER INC-2010043022

PATIENT
  Sex: Female

DRUGS (5)
  1. LYRICA [Suspect]
     Indication: NEURALGIA
     Dosage: 150 MG, 2X/DAY
     Route: 048
     Dates: start: 20070101, end: 20100301
  2. LYRICA [Suspect]
     Dosage: 150 MG, 3X/DAY
     Dates: start: 20100301, end: 20100404
  3. DARVOCET [Suspect]
     Dosage: UNK
     Dates: start: 20100101
  4. VICODIN [Suspect]
     Dosage: UNK
     Dates: start: 20100101
  5. TRAMADOL [Concomitant]
     Indication: PAIN
     Dosage: UNK
     Dates: end: 20100101

REACTIONS (4)
  - BURNING SENSATION [None]
  - DRUG INEFFECTIVE [None]
  - NEURALGIA [None]
  - RASH MACULAR [None]
